FAERS Safety Report 19956417 (Version 1)
Quarter: 2021Q4

REPORT INFORMATION
  Report Type: Spontaneous
  Country: US (occurrence: US)
  Receive Date: 20211014
  Receipt Date: 20211014
  Transmission Date: 20220303
  Serious: No
  Sender: FDA-Public Use
  Company Number: US-UNIQUE PHARMACEUTICAL LABORATORIES, A DIV. OF JBCPL-2021UNI000041

PATIENT
  Sex: Female

DRUGS (1)
  1. CETIRIZINE [Suspect]
     Active Substance: CETIRIZINE HYDROCHLORIDE
     Indication: Allergy to animal
     Dosage: 10 MILLIGRAM
     Route: 048
     Dates: start: 20210714

REACTIONS (1)
  - Chest discomfort [Not Recovered/Not Resolved]
